FAERS Safety Report 18408025 (Version 1)
Quarter: 2020Q4

REPORT INFORMATION
  Report Type: Spontaneous
  Country: US (occurrence: US)
  Receive Date: 20201020
  Receipt Date: 20201020
  Transmission Date: 20210114
  Serious: Yes (Disabling)
  Sender: FDA-Public Use
  Company Number: US-ALLERGAN-2039344US

PATIENT
  Sex: Male

DRUGS (2)
  1. VRAYLAR [Suspect]
     Active Substance: CARIPRAZINE
     Indication: MAJOR DEPRESSION
     Dosage: 1.5 MG, QAM ON EVERY 4TH DAY/ EVERY 3 DAYS FOR 3 MONTHS
     Route: 048
  2. VRAYLAR [Suspect]
     Active Substance: CARIPRAZINE
     Indication: ANXIETY
     Dosage: 1.5 MG, QAM
     Route: 048

REACTIONS (7)
  - Off label use [Unknown]
  - Inappropriate schedule of product administration [Unknown]
  - Therapeutic product ineffective for unapproved indication [Unknown]
  - Loss of personal independence in daily activities [Not Recovered/Not Resolved]
  - Restlessness [Not Recovered/Not Resolved]
  - Formication [Not Recovered/Not Resolved]
  - Akathisia [Not Recovered/Not Resolved]
